FAERS Safety Report 18266527 (Version 1)
Quarter: 2020Q3

REPORT INFORMATION
  Report Type: Spontaneous
  Country: TR (occurrence: TR)
  Receive Date: 20200915
  Receipt Date: 20200915
  Transmission Date: 20201103
  Serious: Yes (Other)
  Sender: FDA-Public Use
  Company Number: NVSC2020TR208819

PATIENT
  Age: 13 Year
  Sex: Female

DRUGS (1)
  1. OMNITROPE [Suspect]
     Active Substance: SOMATROPIN
     Indication: GROWTH HORMONE DEFICIENCY
     Dosage: 1.6 MG, QD(1.6 MG A DAY AND 6 DAYS OF A WEEK)
     Route: 065

REACTIONS (5)
  - Product dose omission issue [Unknown]
  - Product storage error [Unknown]
  - Synovial cyst [Unknown]
  - Medication error [Unknown]
  - Arthralgia [Unknown]

NARRATIVE: CASE EVENT DATE: 20200718
